FAERS Safety Report 19325950 (Version 1)
Quarter: 2021Q2

REPORT INFORMATION
  Report Type: Spontaneous
  Country: GR (occurrence: GR)
  Receive Date: 20210528
  Receipt Date: 20210528
  Transmission Date: 20210717
  Serious: Yes (Other)
  Sender: FDA-Public Use
  Company Number: GR-PFIZER INC-2021556085

PATIENT
  Age: 47 Year
  Sex: Female

DRUGS (1)
  1. LORLATINIB [Suspect]
     Active Substance: LORLATINIB
     Indication: NON-SMALL CELL LUNG CANCER METASTATIC

REACTIONS (3)
  - Off label use [Unknown]
  - Hypertriglyceridaemia [Recovered/Resolved]
  - Hepatotoxicity [Recovered/Resolved]
